FAERS Safety Report 26175733 (Version 1)
Quarter: 2025Q4

REPORT INFORMATION
  Report Type: Report from Study
  Country: None (occurrence: JP)
  Receive Date: 20251218
  Receipt Date: 20251218
  Transmission Date: 20260118
  Serious: Yes (Death)
  Sender: ALNYLAM PHARMACEUTICALS
  Company Number: JP-ALNYLAM PHARMACEUTICALS, INC.-ALN-2025-008048

PATIENT
  Weight: 52 kg

DRUGS (7)
  1. AMVUTTRA [Suspect]
     Active Substance: VUTRISIRAN
     Indication: Hereditary neuropathic amyloidosis
     Dosage: 25 MILLIGRAM, Q3M
  2. AMVUTTRA [Suspect]
     Active Substance: VUTRISIRAN
     Dosage: 25 MILLIGRAM, Q3M
  3. VITAMINS [Concomitant]
     Active Substance: VITAMINS
     Indication: Vitamin supplementation
     Dosage: 1 GRAM/DAY
     Route: 061
  4. LYRICA [Concomitant]
     Active Substance: PREGABALIN
     Indication: Hereditary neuropathic amyloidosis
     Dosage: 75 MILLIGRAM/DAY
     Route: 061
  5. EDOXABAN TOSYLATE [Concomitant]
     Active Substance: EDOXABAN TOSYLATE
     Indication: Atrial fibrillation
     Dosage: 30 MILLIGRAM/DAY
     Route: 061
  6. CARVEDILOL [Concomitant]
     Active Substance: CARVEDILOL
     Indication: Hereditary neuropathic amyloidosis
     Dosage: 2.5 MILLIGRAM/DAY
     Route: 061
  7. TORASEMIDE KO [Concomitant]
     Indication: Hereditary neuropathic amyloidosis
     Dosage: 8 MILLIGRAM/DAY
     Route: 061

REACTIONS (1)
  - Death [Fatal]
